FAERS Safety Report 15855567 (Version 1)
Quarter: 2019Q1

REPORT INFORMATION
  Report Type: Spontaneous
  Country: RO (occurrence: RO)
  Receive Date: 20190122
  Receipt Date: 20190122
  Transmission Date: 20190417
  Serious: Yes (Hospitalization)
  Sender: FDA-Public Use
  Company Number: RO-ELI_LILLY_AND_COMPANY-RO201812004184

PATIENT
  Age: 34 Year
  Sex: Female

DRUGS (4)
  1. OLANZAPINE. [Suspect]
     Active Substance: OLANZAPINE
     Indication: SOMNOLENCE
  2. RISPOLEPT CONSTA [Suspect]
     Active Substance: RISPERIDONE
     Indication: SCHIZOPHRENIA
     Dosage: 100 MG, MONTHLY (1/M)
     Route: 030
     Dates: end: 2017
  3. ZOPICLONE [Suspect]
     Active Substance: ZOPICLONE
     Indication: SCHIZOPHRENIA
     Dosage: 7.5 MG, DAILY
     Route: 065
     Dates: end: 2017
  4. OLANZAPINE. [Suspect]
     Active Substance: OLANZAPINE
     Indication: SCHIZOPHRENIA
     Dosage: 5 MG, DAILY
     Route: 065
     Dates: end: 2017

REACTIONS (3)
  - Weight increased [Unknown]
  - Drug ineffective [Unknown]
  - Depressed mood [Unknown]

NARRATIVE: CASE EVENT DATE: 201702
